FAERS Safety Report 4687410-2 (Version None)
Quarter: 2005Q2

REPORT INFORMATION
  Report Type: 
  Country: None (occurrence: None)
  Receive Date: 20050608
  Receipt Date: 20050608
  Transmission Date: 20051028
  Serious: Yes (Other)
  Sender: FDA-Public Use
  Company Number: None

PATIENT
  Age: 55 Year
  Sex: Male
  Weight: 61.5078 kg

DRUGS (2)
  1. TRUVADA [Suspect]
     Indication: HIV INFECTION
     Dosage: 1 QD ORAL
     Route: 048
     Dates: start: 20050118, end: 20050301
  2. NELFINAVIR [Concomitant]

REACTIONS (2)
  - PRURITUS [None]
  - RASH [None]
